FAERS Safety Report 24602151 (Version 1)
Quarter: 2024Q4

REPORT INFORMATION
  Report Type: Report from Study
  Country: US (occurrence: US)
  Receive Date: 20241111
  Receipt Date: 20241111
  Transmission Date: 20250115
  Serious: Yes (Hospitalization)
  Sender: ACCORD
  Company Number: US-Accord-450187

PATIENT
  Age: 32 Year
  Sex: Male

DRUGS (1)
  1. CLOZAPINE [Suspect]
     Active Substance: CLOZAPINE
     Indication: Product used for unknown indication
     Dosage: 250MG/DAILY

REACTIONS (5)
  - Imprisonment [Unknown]
  - Delusion [Unknown]
  - Anger [Unknown]
  - Psychotic disorder [Unknown]
  - Irritability [Unknown]

NARRATIVE: CASE EVENT DATE: 20241003
